FAERS Safety Report 19067640 (Version 1)
Quarter: 2021Q1

REPORT INFORMATION
  Report Type: Spontaneous
  Country: US (occurrence: US)
  Receive Date: 20210329
  Receipt Date: 20210329
  Transmission Date: 20210420
  Serious: No
  Sender: FDA-Public Use
  Company Number: US-BRISTOL-MYERS SQUIBB COMPANY-BMS-2021-028152

PATIENT
  Age: 73 Year
  Sex: Male
  Weight: 95.25 kg

DRUGS (2)
  1. DEXILANT [Concomitant]
     Active Substance: DEXLANSOPRAZOLE
     Indication: HIATUS HERNIA
     Dosage: BEGAN ABOUT FIVE YEARS AGO
     Route: 065
  2. ELIQUIS [Suspect]
     Active Substance: APIXABAN
     Indication: THROMBOSIS
     Dosage: UNK UNK, BID
     Route: 048

REACTIONS (5)
  - Herpes zoster [Unknown]
  - Skin haemorrhage [Unknown]
  - Skin lesion [Recovered/Resolved]
  - Nerve injury [Unknown]
  - Pruritus [Unknown]

NARRATIVE: CASE EVENT DATE: 2020
